FAERS Safety Report 4847705-6 (Version None)
Quarter: 2005Q4

REPORT INFORMATION
  Report Type: 
  Country: None (occurrence: None)
  Receive Date: 20051205
  Receipt Date: 20030620
  Transmission Date: 20060501
  Serious: Yes (Other)
  Sender: FDA-Public Use
  Company Number: GXKR2003GB00774

PATIENT
  Age: 80 Year
  Sex: Female

DRUGS (5)
  1. AMILORIDE, FUROSEMIDE (NGX) AMILORIDE, FUROSEMIDE) [Suspect]
     Dosage: 3, QD
  2. RAMIPRIL [Suspect]
     Dosage: 2.5 MG, QN
  3. SPIRONOLACTONE [Suspect]
     Dosage: 25 MG, QD
  4. LEVOTHYROXINE SODIUM [Concomitant]
  5. DIGOXIN [Concomitant]

REACTIONS (3)
  - BLOOD CREATININE INCREASED [None]
  - BLOOD UREA INCREASED [None]
  - HYPERKALAEMIA [None]
